FAERS Safety Report 8987927 (Version 1)
Quarter: 2012Q4

REPORT INFORMATION
  Report Type: 
  Country: US (occurrence: US)
  Receive Date: 20121227
  Receipt Date: 20121227
  Transmission Date: 20130627
  Serious: Yes (Hospitalization, Other)
  Sender: FDA-Public Use
  Company Number: US-ABBOTT-12P-163-1023219-00

PATIENT
  Sex: Male
  Weight: 90.8 kg

DRUGS (8)
  1. HUMIRA [Suspect]
     Indication: COLITIS ULCERATIVE
     Dates: start: 201201, end: 2012
  2. HUMIRA [Suspect]
     Dates: start: 2012, end: 201212
  3. ADDERALL [Concomitant]
     Indication: ATTENTION DEFICIT/HYPERACTIVITY DISORDER
  4. AMYTRIPTYLLINE [Concomitant]
     Indication: INSOMNIA
  5. LIALDA [Concomitant]
     Indication: COLITIS ULCERATIVE
  6. TESTOSTERONE [Concomitant]
     Indication: ANDROGEN DEFICIENCY
  7. MULTIPLE VITAMINS [Concomitant]
     Indication: VITAMIN SUPPLEMENTATION
  8. PROBIOTICS [Concomitant]
     Indication: PROBIOTIC THERAPY

REACTIONS (5)
  - Carditis [Not Recovered/Not Resolved]
  - Skin infection [Recovered/Resolved]
  - Crohn^s disease [Recovered/Resolved]
  - Dyspnoea exertional [Not Recovered/Not Resolved]
  - Cardiac failure [Not Recovered/Not Resolved]
